FAERS Safety Report 18628266 (Version 1)
Quarter: 2020Q4

REPORT INFORMATION
  Report Type: Spontaneous
  Country: US (occurrence: US)
  Receive Date: 20201217
  Receipt Date: 20201217
  Transmission Date: 20210114
  Serious: No
  Sender: FDA-Public Use
  Company Number: None

PATIENT
  Age: 67 Year
  Sex: Female
  Weight: 76.05 kg

DRUGS (16)
  1. FLUOXETINE 20 MG, ORAL [Concomitant]
  2. LUTEIN 20 MG, ORAL [Concomitant]
  3. VERAPAMIL HCL ER 120 MG, ORAL [Concomitant]
  4. KEYTRUDA 200 MG/4 ML, ORAL [Concomitant]
  5. ZOLPIDEM 10 MG, ORAL [Concomitant]
  6. FISH OIL 1200 MG, ORAL [Concomitant]
  7. INLYTA [Suspect]
     Active Substance: AXITINIB
     Indication: RENAL CANCER
     Route: 048
     Dates: start: 20190927
  8. COENZYME Q-10, ORAL [Concomitant]
  9. CRANBERRY 400 MG, ORAL [Concomitant]
  10. FERROUS SULFATE 325 MG, ORAL [Concomitant]
  11. VITAMIN D3, ORAL [Concomitant]
  12. HYDROCHLOROTHIAZIDE 12.5 MG. ORAL [Concomitant]
  13. EXCEDRIN 250-250-65 MG, ORAL [Concomitant]
  14. BIOTIN 10MG, ORAL [Concomitant]
  15. CYANOCOBALAMIN 2500 MCG, SUBLINGUAL [Concomitant]
  16. MULTIVITAMIN, ORAL [Concomitant]

REACTIONS (1)
  - Oral toxicity [None]

NARRATIVE: CASE EVENT DATE: 20201217
